FAERS Safety Report 19649870 (Version 1)
Quarter: 2021Q3

REPORT INFORMATION
  Report Type: Other
  Country: IT (occurrence: IT)
  Receive Date: 20210802
  Receipt Date: 20210802
  Transmission Date: 20211014
  Serious: Yes (Hospitalization)
  Sender: FDA-Public Use
  Company Number: IT-B.BRAUN MEDICAL INC.-2114561

PATIENT
  Age: 40 Year
  Sex: Female

DRUGS (3)
  1. AMIODARONE [Suspect]
     Active Substance: AMIODARONE
     Route: 042
  2. ESMOLOL [Suspect]
     Active Substance: ESMOLOL HYDROCHLORIDE
  3. LIDOCAINE HYDROCHLORIDE. [Suspect]
     Active Substance: LIDOCAINE HYDROCHLORIDE
     Indication: ARRHYTHMIA
     Route: 042

REACTIONS (1)
  - Drug ineffective [None]
